FAERS Safety Report 22976823 (Version 4)
Quarter: 2024Q2

REPORT INFORMATION
  Report Type: Report from Study
  Country: NL (occurrence: NL)
  Receive Date: 20230925
  Receipt Date: 20240602
  Transmission Date: 20240716
  Serious: Yes (Hospitalization)
  Sender: FDA-Public Use
  Company Number: NL-ABBVIE-5420122

PATIENT
  Sex: Female

DRUGS (10)
  1. CARBIDOPA\LEVODOPA [Suspect]
     Active Substance: CARBIDOPA\LEVODOPA
     Indication: Parkinson^s disease
     Dosage: MD: 4.5ML, CD: 1.5ML/H, ED: 1.0ML, REMAINS AT 16 HOURS
     Route: 050
     Dates: start: 20230621, end: 20230919
  2. CARBIDOPA\LEVODOPA [Suspect]
     Active Substance: CARBIDOPA\LEVODOPA
     Dosage: MD: 4.5ML, CD: 1.5ML/H, ED: 1.0ML DURATION TEXT: REMAINS AT 16 HOURS
     Route: 050
     Dates: start: 20240529
  3. CARBIDOPA\LEVODOPA [Suspect]
     Active Substance: CARBIDOPA\LEVODOPA
     Route: 050
     Dates: start: 20120628
  4. CARBIDOPA\LEVODOPA [Suspect]
     Active Substance: CARBIDOPA\LEVODOPA
     Dosage: MD: 4.5ML, CD: 1.5ML/H, ED: 1.0ML, REMAINS AT 16 HOURS
     Route: 050
     Dates: start: 20230919, end: 20231127
  5. CARBIDOPA\LEVODOPA [Suspect]
     Active Substance: CARBIDOPA\LEVODOPA
     Dosage: MD: 4.5ML, CD: 1.5ML/H, ED: 1.0ML/REMAINS AT 16 HOURS
     Route: 050
     Dates: start: 20231127, end: 20240222
  6. CARBIDOPA\LEVODOPA [Suspect]
     Active Substance: CARBIDOPA\LEVODOPA
     Dosage: MD: 4.5ML, CD: 1.5ML/H, ED: 1.0ML/REMAINS AT 16 HOURS
     Route: 050
     Dates: start: 20240222, end: 20240321
  7. CARBIDOPA\LEVODOPA [Suspect]
     Active Substance: CARBIDOPA\LEVODOPA
     Dosage: MD: 4.5ML, CD: 1.5ML/H, ED: 1.0ML/REMAINS AT 24 HOURS
     Route: 050
     Dates: start: 20240321, end: 20240522
  8. CARBIDOPA\LEVODOPA [Suspect]
     Active Substance: CARBIDOPA\LEVODOPA
     Dosage: MD: 4.5ML, CD: 1.5ML/H, ED: 1.0ML DURATION TEXT: REMAINS AT 16 HOURS
     Route: 050
     Dates: start: 20240522, end: 20240529
  9. POLYETHYLENE GLYCOLS [Concomitant]
     Active Substance: POLYETHYLENE GLYCOLS
     Indication: Bowel movement irregularity
  10. POLYETHYLENE GLYCOLS [Concomitant]
     Active Substance: POLYETHYLENE GLYCOLS
     Indication: Bowel movement irregularity
     Dosage: REMAINS AT 24 HOURS
     Route: 065

REACTIONS (13)
  - Hip fracture [Recovered/Resolved]
  - Weight decreased [Not Recovered/Not Resolved]
  - Abnormal dreams [Not Recovered/Not Resolved]
  - Stress [Not Recovered/Not Resolved]
  - Parkinson^s disease [Not Recovered/Not Resolved]
  - Fibroma [Not Recovered/Not Resolved]
  - Therapeutic product effect variable [Not Recovered/Not Resolved]
  - Device issue [Not Recovered/Not Resolved]
  - Malaise [Not Recovered/Not Resolved]
  - Stoma site discomfort [Not Recovered/Not Resolved]
  - Tension [Not Recovered/Not Resolved]
  - Restlessness [Not Recovered/Not Resolved]
  - Loss of personal independence in daily activities [Not Recovered/Not Resolved]

NARRATIVE: CASE EVENT DATE: 20230101
